FAERS Safety Report 4572958-1 (Version None)
Quarter: 2005Q1

REPORT INFORMATION
  Report Type: 
  Country: None (occurrence: None)
  Receive Date: 20050203
  Receipt Date: 20050125
  Transmission Date: 20050727
  Serious: Yes (Death, Hospitalization)
  Sender: FDA-Public Use
  Company Number: 2005EU000033

PATIENT
  Age: 12 Year
  Sex: Female

DRUGS (5)
  1. PROGRAF [Suspect]
     Indication: INTESTINAL TRANSPLANT
  2. PROGRAF [Suspect]
     Indication: PANCREAS TRANSPLANT
  3. PROGRAF [Suspect]
     Indication: RENAL AND LIVER TRANSPLANT
  4. VANCOMYCIN [Concomitant]
  5. METHYLPREDNISOLONE [Concomitant]

REACTIONS (11)
  - BACTERIAL INFECTION [None]
  - BRONCHOPNEUMONIA [None]
  - CHOLANGITIS [None]
  - ENTEROCOCCAL INFECTION [None]
  - GASTRIC OUTLET OBSTRUCTION [None]
  - HAEMODIALYSIS [None]
  - INTESTINE TRANSPLANT REJECTION [None]
  - NEPHROTIC SYNDROME [None]
  - PSEUDOMONAS INFECTION [None]
  - RENAL FAILURE [None]
  - SEPSIS [None]
